FAERS Safety Report 9165218 (Version 1)
Quarter: 2013Q1

REPORT INFORMATION
  Report Type: Spontaneous
  Country: US (occurrence: None)
  Receive Date: 20130227
  Receipt Date: 20130227
  Transmission Date: 20140127
  Serious: Yes (Hospitalization, Other)
  Sender: FDA-Public Use
  Company Number: 2013P1002413

PATIENT
  Age: 6 Year
  Sex: Male

DRUGS (4)
  1. ALBENDAZOLE [Suspect]
     Indication: ONCHOCERCIASIS
     Dosage: 1 TABLET
     Dates: start: 20130130
  2. ALBENDAZOLE [Suspect]
     Indication: FILARIASIS LYMPHATIC
     Dosage: 1 TABLET
     Dates: start: 20130130
  3. IVERMECTIN [Suspect]
     Indication: ONCHOCERCIASIS
     Dosage: 1 TABLET
     Dates: start: 20130130
  4. IVERMECTIN [Suspect]
     Indication: FILARIASIS LYMPHATIC
     Dosage: 1 TABLET
     Dates: start: 20130130

REACTIONS (5)
  - Rash macular [None]
  - Blister [None]
  - Skin exfoliation [None]
  - Skin lesion [None]
  - Toxic epidermal necrolysis [None]
